FAERS Safety Report 25839435 (Version 2)
Quarter: 2025Q4

REPORT INFORMATION
  Report Type: Spontaneous
  Country: US (occurrence: US)
  Receive Date: 20250924
  Receipt Date: 20251003
  Transmission Date: 20260118
  Serious: No
  Sender: LUPIN
  Company Number: US-LUPIN PHARMACEUTICALS INC.-2025-08363

PATIENT
  Age: 19 Year
  Weight: 57.143 kg

DRUGS (2)
  1. XOPENEX HFA [Suspect]
     Active Substance: LEVALBUTEROL TARTRATE
     Indication: Asthma
     Dosage: 4 PUFFS, PRN
  2. QVAR [Concomitant]
     Active Substance: BECLOMETHASONE DIPROPIONATE
     Indication: Asthma
     Dosage: 2 INHALATIONS IN THE MORNING AND NIGHT, BID (FOR 3 WEEKS)
     Route: 065

REACTIONS (4)
  - Incorrect dose administered by device [Unknown]
  - Extra dose administered [Unknown]
  - Device delivery system issue [Unknown]
  - No adverse event [Unknown]
